FAERS Safety Report 8231248-6 (Version None)
Quarter: 2012Q1

REPORT INFORMATION
  Report Type: 
  Country: None (occurrence: None)
  Receive Date: 20120323
  Receipt Date: 20120319
  Transmission Date: 20120608
  Serious: Yes (Other)
  Sender: FDA-Public Use
  Company Number: CA-TEVA-329059USA

PATIENT
  Age: 67 Year
  Sex: Female

DRUGS (3)
  1. QUETIAPINE [Suspect]
     Route: 065
  2. ESCITALOPRAM [Suspect]
     Route: 065
  3. FUROSEMIDE [Suspect]
     Route: 065

REACTIONS (3)
  - TORSADE DE POINTES [None]
  - ELECTROLYTE IMBALANCE [None]
  - ELECTROCARDIOGRAM QT PROLONGED [None]
